FAERS Safety Report 22806014 (Version 2)
Quarter: 2023Q4

REPORT INFORMATION
  Report Type: Spontaneous
  Country: US (occurrence: US)
  Receive Date: 20230809
  Receipt Date: 20231211
  Transmission Date: 20240110
  Serious: Yes (Other)
  Sender: FDA-Public Use
  Company Number: US-PFIZER INC-PV202200130368

PATIENT
  Age: 66 Year
  Sex: Female
  Weight: 93.605 kg

DRUGS (6)
  1. IBRANCE [Suspect]
     Active Substance: PALBOCICLIB
     Indication: Breast cancer female
     Dosage: 100 MG, CYCLIC (DAILY D1-21 EVERY 28 DAYS)
     Route: 048
  2. IBRANCE [Suspect]
     Active Substance: PALBOCICLIB
     Indication: Bone neoplasm
     Dosage: 100 MG, CYCLIC (DAILY D1-21 EVERY 35 DAYS)
     Route: 048
  3. IBRANCE [Suspect]
     Active Substance: PALBOCICLIB
     Dosage: TAKE ONE TABLET BY MOUTH ON DAYS 1-21 OF EVERY 28-DAY CYCLE
     Route: 048
     Dates: start: 20221121
  4. FEMARA [Concomitant]
     Active Substance: LETROZOLE
     Dosage: 2.5 UNK
  5. FEMARA [Concomitant]
     Active Substance: LETROZOLE
     Dosage: 2.5 MG, DAILY
  6. ZOMETA [Concomitant]
     Active Substance: ZOLEDRONIC ACID
     Dosage: UNK
     Dates: start: 202108

REACTIONS (3)
  - Neutropenia [Not Recovered/Not Resolved]
  - Leukopenia [Unknown]
  - Thrombocytopenia [Unknown]
